FAERS Safety Report 9492321 (Version 1)
Quarter: 2013Q3

REPORT INFORMATION
  Report Type: Spontaneous
  Country: IR (occurrence: IR)
  Receive Date: 20130830
  Receipt Date: 20130830
  Transmission Date: 20140515
  Serious: Yes (Death, Other)
  Sender: FDA-Public Use
  Company Number: PHHY2013IR093977

PATIENT
  Age: 25 Year
  Sex: Male

DRUGS (4)
  1. 5-FLUOROURACIL [Suspect]
  2. OXALIPLATIN [Suspect]
  3. IRINOTECAN [Suspect]
  4. CALCIUM FOLINATE [Concomitant]

REACTIONS (11)
  - Colon cancer metastatic [Fatal]
  - Neoplasm progression [Fatal]
  - Metastases to liver [Unknown]
  - Metastases to lung [Unknown]
  - Abdominal discomfort [Unknown]
  - Leukocytosis [Unknown]
  - Granulocytosis [Unknown]
  - Differential white blood cell count abnormal [Unknown]
  - Metastases to bone [Unknown]
  - Chronic myeloid leukaemia [Unknown]
  - Dyspnoea [Unknown]
